FAERS Safety Report 9268919 (Version 2)
Quarter: 2013Q2

REPORT INFORMATION
  Report Type: Spontaneous
  Country: AR (occurrence: AR)
  Receive Date: 20130503
  Receipt Date: 20130520
  Transmission Date: 20140414
  Serious: Yes (Hospitalization)
  Sender: FDA-Public Use
  Company Number: AR-ROCHE-1217767

PATIENT
  Age: 68 Year
  Sex: Male

DRUGS (4)
  1. MABTHERA [Suspect]
     Indication: NON-HODGKIN^S LYMPHOMA
     Route: 042
  2. MABTHERA [Suspect]
     Indication: SJOGREN^S SYNDROME
  3. MABTHERA [Suspect]
     Indication: OFF LABEL USE
  4. ACENOCOUMAROL [Concomitant]
     Indication: ANTIPHOSPHOLIPID SYNDROME

REACTIONS (6)
  - Furuncle [Recovered/Resolved]
  - Abdominal wall abscess [Recovered/Resolved]
  - Abscess limb [Recovered/Resolved]
  - Abscess [Recovered/Resolved]
  - Drug intolerance [Unknown]
  - Gastrointestinal haemorrhage [Recovering/Resolving]
